FAERS Safety Report 7803202-7 (Version None)
Quarter: 2011Q4

REPORT INFORMATION
  Report Type: 
  Country: None (occurrence: None)
  Receive Date: 20111007
  Receipt Date: 20111003
  Transmission Date: 20120403
  Serious: Yes (Other)
  Sender: FDA-Public Use
  Company Number: US-PFIZER INC-2011235778

PATIENT
  Sex: Female
  Weight: 62 kg

DRUGS (1)
  1. INDERAL LA [Suspect]
     Indication: HYPERTENSION
     Dosage: 80 MG, 1X/DAY
     Route: 048
     Dates: start: 19910101

REACTIONS (2)
  - LIP SWELLING [None]
  - RASH [None]
